FAERS Safety Report 8907462 (Version 1)
Quarter: 2012Q4

REPORT INFORMATION
  Report Type: 
  Country: US (occurrence: US)
  Receive Date: 20121113
  Receipt Date: 20121113
  Transmission Date: 20130627
  Serious: No
  Sender: FDA-Public Use
  Company Number: US-AMGEN-USASP2012010394

PATIENT
  Age: 47 Year
  Sex: Female

DRUGS (6)
  1. ENBREL [Suspect]
     Indication: PRODUCT USED FOR UNKNOWN INDICATION
     Dosage: 50 mg, qwk
     Route: 058
  2. OXAPROZIN [Concomitant]
     Dosage: 600 mg, UNK
  3. FISH OIL [Concomitant]
  4. VITAMIN D /00107901/ [Concomitant]
     Dosage: UNK
  5. FOLIC ACID [Concomitant]
     Dosage: 5 mg, UNK
  6. METHOTREXATE [Concomitant]
     Dosage: 1 UNK, UNK

REACTIONS (4)
  - Oedema peripheral [Unknown]
  - Weight increased [Unknown]
  - Alopecia [Unknown]
  - Pain [Unknown]
